FAERS Safety Report 5387082-8 (Version None)
Quarter: 2007Q3

REPORT INFORMATION
  Report Type: 
  Country: None (occurrence: None)
  Receive Date: 20070710
  Receipt Date: 20070626
  Transmission Date: 20080115
  Serious: Yes (Hospitalization)
  Sender: FDA-Public Use
  Company Number: 2006US002968

PATIENT
  Age: 50 Year
  Sex: Male
  Weight: 102 kg

DRUGS (1)
  1. AMEVIVE [Suspect]
     Indication: PSORIASIS
     Dosage: 15 MG, WEEKLY, INTRAMUSCULAR
     Route: 030
     Dates: start: 20060106

REACTIONS (4)
  - APPENDICITIS [None]
  - DIVERTICULUM [None]
  - ELECTROCARDIOGRAM ST SEGMENT ABNORMAL [None]
  - LEFT ATRIAL DILATATION [None]
